FAERS Safety Report 19148183 (Version 2)
Quarter: 2021Q2

REPORT INFORMATION
  Report Type: Spontaneous
  Country: US (occurrence: US)
  Receive Date: 20210416
  Receipt Date: 20210628
  Transmission Date: 20210717
  Serious: Yes (Hospitalization)
  Sender: FDA-Public Use
  Company Number: US-TEVA-2021-US-1900119

PATIENT
  Age: 8 Week
  Sex: Male

DRUGS (3)
  1. DIAZOXIDE [Suspect]
     Active Substance: DIAZOXIDE
     Indication: HYPERINSULINAEMIC HYPOGLYCAEMIA
     Route: 065
  2. D5 [Suspect]
     Active Substance: DEXTROSE
     Indication: HYPOGLYCAEMIA NEONATAL
     Dosage: D5 CONTAINING IV FLUIDS
     Route: 042
  3. D10 [Suspect]
     Active Substance: ANHYDROUS DEXTROSE
     Indication: HYPOGLYCAEMIA NEONATAL
     Dosage: ADMINISTERED 3 BOLUSES
     Route: 040

REACTIONS (4)
  - Hyperinsulinaemic hypoglycaemia [Recovered/Resolved]
  - Oedema peripheral [Unknown]
  - Seizure like phenomena [Unknown]
  - Hypoxia [Unknown]
